FAERS Safety Report 7558682-1 (Version None)
Quarter: 2011Q2

REPORT INFORMATION
  Report Type: 
  Country: None (occurrence: None)
  Receive Date: 20110621
  Receipt Date: 20110613
  Transmission Date: 20111010
  Serious: Yes (Hospitalization)
  Sender: FDA-Public Use
  Company Number: US-BIOGENIDEC-2011BI021677

PATIENT
  Age: 49 Year
  Sex: Male

DRUGS (3)
  1. TYLENOL-500 [Concomitant]
     Indication: PREMEDICATION
  2. CLARITIN [Concomitant]
     Indication: PREMEDICATION
  3. TYSABRI [Suspect]
     Indication: MULTIPLE SCLEROSIS
     Route: 042
     Dates: start: 20110323

REACTIONS (1)
  - HYPERSENSITIVITY [None]
